FAERS Safety Report 5092311-4 (Version None)
Quarter: 2006Q3

REPORT INFORMATION
  Report Type: 
  Country: None (occurrence: None)
  Receive Date: 20060825
  Receipt Date: 20060809
  Transmission Date: 20061208
  Serious: Yes (Hospitalization)
  Sender: FDA-Public Use
  Company Number: US200608002454

PATIENT
  Age: 97 Year
  Sex: Female

DRUGS (7)
  1. CYMBALTA [Suspect]
     Dosage: 30 MG,
  2. ATIVAN [Concomitant]
  3. DULCOLAX [Concomitant]
  4. REMERON [Concomitant]
  5. ATACAND /SWE/ (CANDESARTAN CILEXETIL) [Concomitant]
  6. ALLEGRA [Concomitant]
  7. ASPIRIN [Concomitant]

REACTIONS (4)
  - CONVULSION [None]
  - DELIRIUM [None]
  - DYSTONIA [None]
  - SYSTEMIC LUPUS ERYTHEMATOSUS [None]
